FAERS Safety Report 11167000 (Version 1)
Quarter: 2015Q2

REPORT INFORMATION
  Report Type: Spontaneous
  Country: CH (occurrence: None)
  Receive Date: 20150603
  Receipt Date: 20150603
  Transmission Date: 20150821
  Serious: Yes (Hospitalization, Other)
  Sender: FDA-Public Use
  Company Number: 2015050056

PATIENT
  Age: 68 Year
  Sex: Male

DRUGS (9)
  1. ALDACTONE [Suspect]
     Active Substance: SPIRONOLACTONE
     Dosage: SUSPENDED 4 DAYS PRIOR HOSPITALIZATION, LATER CONTINUED (25 MG, 1 IN 1 D)
  2. ALLOPUR [Suspect]
     Active Substance: ALLOPURINOL
     Dosage: 0-0-1-0 (300 MG, 1 IN 1 D)
  3. CORDARONE [Suspect]
     Active Substance: AMIODARONE HYDROCHLORIDE
     Dosage: 0-0-1-0 (200 MG. 1 IN 1 D)
  4. XARELTO [Concomitant]
     Active Substance: RIVAROXABAN
  5. RAMIPRIL. [Suspect]
     Active Substance: RAMIPRIL
     Dosage: 0-0-0.25-0 (0.25 DOAGE FORMS, 1 IN 1 D)
  6. MAGNESIOCARD GRAPEFRUIT (MAGNESIUM ASPARTATE HYDROCHLORIDE) [Concomitant]
  7. KALIUM HAUSMANN EFFERVETTES [Concomitant]
  8. TOREM [Suspect]
     Active Substance: TORSEMIDE
     Dosage: 0-0-3-0, ADJUSTED TO BODY WEIGHT CHANGES BY THE PATIENT, AT DISCHARGE INCREASED TO 70 MG/D (30 MG, 1 IN 1 D)
  9. PRADIF T (TAMSULOSIN HYDROCHLORIDE) [Concomitant]

REACTIONS (8)
  - Therapy cessation [None]
  - Vomiting [None]
  - Hypotension [None]
  - Palpitations [None]
  - Hyperchlorhydria [None]
  - Asthenia [None]
  - Hyponatraemia [None]
  - Gynaecomastia [None]

NARRATIVE: CASE EVENT DATE: 20131119
